FAERS Safety Report 9930662 (Version 1)
Quarter: 2014Q1

REPORT INFORMATION
  Report Type: Spontaneous
  Country: LB (occurrence: LB)
  Receive Date: 20140227
  Receipt Date: 20140227
  Transmission Date: 20141002
  Serious: Yes (Other)
  Sender: FDA-Public Use
  Company Number: LB-ASTRAZENECA-2014SE12798

PATIENT
  Age: 51 Year
  Sex: Male

DRUGS (6)
  1. BRILINTA [Suspect]
     Route: 048
  2. ASPIRIN [Concomitant]
  3. ATACAND [Concomitant]
  4. LIPITOR [Concomitant]
  5. LOSEC [Concomitant]
  6. CORDARONE [Concomitant]

REACTIONS (2)
  - Haematocrit decreased [Unknown]
  - Gastrointestinal haemorrhage [Unknown]
